FAERS Safety Report 6614581-0 (Version None)
Quarter: 2010Q1

REPORT INFORMATION
  Report Type: 
  Country: None (occurrence: None)
  Receive Date: 20100304
  Receipt Date: 20100304
  Transmission Date: 20100710
  Serious: Yes (Other)
  Sender: FDA-Public Use
  Company Number: None

PATIENT
  Sex: Female
  Weight: 65.7716 kg

DRUGS (1)
  1. NITROFURANTOIN [Suspect]
     Indication: URINARY TRACT INFECTION
     Dosage: 100 MG TWICE DAILY PO
     Route: 048
     Dates: start: 20100211, end: 20100216

REACTIONS (9)
  - ARTHRALGIA [None]
  - ARTHRITIS [None]
  - HEADACHE [None]
  - JOINT STIFFNESS [None]
  - LUPUS-LIKE SYNDROME [None]
  - MOBILITY DECREASED [None]
  - PAIN [None]
  - PYREXIA [None]
  - SLEEP DISORDER [None]
